FAERS Safety Report 7764197-8 (Version None)
Quarter: 2011Q3

REPORT INFORMATION
  Report Type: 
  Country: None (occurrence: None)
  Receive Date: 20110921
  Receipt Date: 20110909
  Transmission Date: 20111222
  Serious: Yes (Hospitalization)
  Sender: FDA-Public Use
  Company Number: CH-US-EMD SERONO, INC.-7069332

PATIENT
  Sex: Female
  Weight: 87 kg

DRUGS (10)
  1. ACETAMINOPHEN [Concomitant]
     Indication: PROPHYLAXIS
     Route: 048
     Dates: start: 20060601
  2. RHINOMER [Concomitant]
  3. PADMA [Concomitant]
     Route: 048
  4. PADMED CIRCOSAN [Concomitant]
     Indication: MULTIPLE SCLEROSIS RELAPSE
     Route: 048
     Dates: start: 20110101
  5. SCHINDLER VOLCANIC ROCKS [Concomitant]
  6. RHINOCORT [Concomitant]
     Route: 045
  7. REBIF [Suspect]
     Indication: SECONDARY PROGRESSIVE MULTIPLE SCLEROSIS
  8. LIORESAL [Concomitant]
     Route: 048
     Dates: start: 19870101
  9. REBIF [Suspect]
     Indication: MULTIPLE SCLEROSIS
     Route: 058
     Dates: start: 20060601
  10. LIORESAL [Concomitant]
     Indication: MUSCLE SPASMS
     Route: 048
     Dates: start: 19870101

REACTIONS (8)
  - HYSTERECTOMY [None]
  - CHRONIC SINUSITIS [None]
  - CARPAL TUNNEL SYNDROME [None]
  - GOITRE [None]
  - MULTIPLE SCLEROSIS RELAPSE [None]
  - CYSTITIS [None]
  - INJECTION SITE ABSCESS [None]
  - MENINGITIS VIRAL [None]
